FAERS Safety Report 7431732-9 (Version None)
Quarter: 2011Q2

REPORT INFORMATION
  Report Type: 
  Country: None (occurrence: None)
  Receive Date: 20110422
  Receipt Date: 20110413
  Transmission Date: 20111010
  Serious: Yes (Hospitalization)
  Sender: FDA-Public Use
  Company Number: US-BIOGENIDEC-2011BI013942

PATIENT
  Age: 60 Year
  Sex: Female

DRUGS (5)
  1. BLOOD PRESSURE MEDICATIONS (NOS) [Concomitant]
     Route: 048
  2. DIABETIC MEDICATIONS (NOS) [Concomitant]
     Route: 048
  3. AVONEX [Suspect]
     Route: 030
     Dates: start: 20050324, end: 20050701
  4. MEDICATIONS (NOS) [Concomitant]
     Route: 048
  5. AVONEX [Suspect]
     Indication: MULTIPLE SCLEROSIS
     Route: 030
     Dates: start: 20060207

REACTIONS (2)
  - PULMONARY OEDEMA [None]
  - CARDIAC DISORDER [None]
